FAERS Safety Report 6041522-X (Version None)
Quarter: 2009Q1

REPORT INFORMATION
  Report Type: 
  Country: None (occurrence: None)
  Receive Date: 20090116
  Receipt Date: 20081021
  Transmission Date: 20090719
  Serious: No
  Sender: FDA-Public Use
  Company Number: US-BRISTOL-MYERS SQUIBB COMPANY-14379002

PATIENT

DRUGS (1)
  1. ABILIFY [Suspect]

REACTIONS (3)
  - AGITATION [None]
  - ANGER [None]
  - VIOLENCE-RELATED SYMPTOM [None]
